FAERS Safety Report 5482335-7 (Version None)
Quarter: 2007Q4

REPORT INFORMATION
  Report Type: 
  Country: None (occurrence: None)
  Receive Date: 20071011
  Receipt Date: 20070913
  Transmission Date: 20080405
  Serious: No
  Sender: FDA-Public Use
  Company Number: EE-AVENTIS-200718833GDDC

PATIENT
  Age: 37 Year
  Sex: Female

DRUGS (1)
  1. ARAVA [Suspect]
     Indication: RHEUMATOID ARTHRITIS
     Dosage: DOSE: UNK

REACTIONS (1)
  - DRUG EXPOSURE DURING PREGNANCY [None]
